FAERS Safety Report 8020393-6 (Version None)
Quarter: 2012Q1

REPORT INFORMATION
  Report Type: 
  Country: None (occurrence: None)
  Receive Date: 20120103
  Receipt Date: 20111221
  Transmission Date: 20120608
  Serious: Yes (Hospitalization)
  Sender: FDA-Public Use
  Company Number: US-ELI_LILLY_AND_COMPANY-US201108006343

PATIENT
  Sex: Female
  Weight: 92 kg

DRUGS (19)
  1. METHOTREXATE [Concomitant]
  2. MULTI-VITAMIN [Concomitant]
  3. NORVASC [Concomitant]
  4. PREDNISONE TAB [Concomitant]
  5. VITAMIN C [Concomitant]
  6. VENTOLIN [Concomitant]
     Dosage: UNK
  7. POTASSIUM [Concomitant]
  8. FLEXERIL [Concomitant]
  9. TRIMETHOPRIM [Concomitant]
  10. PLAQUENIL [Concomitant]
  11. ADVAIR DISKUS 100/50 [Concomitant]
  12. FORTEO [Suspect]
     Dosage: 20 UG, QD
     Route: 058
  13. PRILOSEC [Concomitant]
  14. RELAFEN [Concomitant]
  15. FOLIC ACID [Concomitant]
  16. BENICAR [Concomitant]
  17. FORTEO [Suspect]
     Indication: OSTEOPOROSIS
     Dosage: 20 UG, QD
     Route: 058
     Dates: start: 20110201
  18. ZOLOFT [Concomitant]
  19. LASIX [Concomitant]

REACTIONS (6)
  - EYE DISORDER [None]
  - CONTUSION [None]
  - INJECTION SITE ERYTHEMA [None]
  - FALL [None]
  - LUMBAR SPINAL STENOSIS [None]
  - INJURY [None]
